FAERS Safety Report 4293201-7 (Version None)
Quarter: 2004Q1

REPORT INFORMATION
  Report Type: 
  Country: None (occurrence: None)
  Receive Date: 20040210
  Receipt Date: 20040130
  Transmission Date: 20041129
  Serious: Yes (Hospitalization, Other)
  Sender: FDA-Public Use
  Company Number: HQWYE483220JAN04

PATIENT
  Age: 79 Year
  Sex: Female
  Weight: 65 kg

DRUGS (7)
  1. MYLOTARG [Suspect]
     Indication: ACUTE MYELOID LEUKAEMIA
     Dosage: 17 MG OVER 2 HOURS, INTRAVENOUS
     Route: 042
     Dates: start: 20031217, end: 20031217
  2. LEVAQUIN [Concomitant]
  3. FALGYL (METRONIDAZOLE) [Concomitant]
  4. ALLOPURINOL [Concomitant]
  5. LOPRESSOR [Concomitant]
  6. PREVACID [Concomitant]
  7. VALTREX [Concomitant]

REACTIONS (12)
  - BLOOD POTASSIUM DECREASED [None]
  - CLOSTRIDIUM COLITIS [None]
  - FEBRILE NEUTROPENIA [None]
  - HAEMOGLOBIN DECREASED [None]
  - NAUSEA [None]
  - PLATELET COUNT DECREASED [None]
  - PROTHROMBIN TIME PROLONGED [None]
  - STAPHYLOCOCCAL BACTERAEMIA [None]
  - URINARY TRACT INFECTION ENTEROCOCCAL [None]
  - URINARY TRACT INFECTION STAPHYLOCOCCAL [None]
  - VOMITING [None]
  - WHITE BLOOD CELL COUNT DECREASED [None]
